FAERS Safety Report 19673168 (Version 1)
Quarter: 2021Q3

REPORT INFORMATION
  Report Type: Spontaneous
  Country: US (occurrence: US)
  Receive Date: 20210809
  Receipt Date: 20210809
  Transmission Date: 20211014
  Serious: Yes (Other)
  Sender: FDA-Public Use
  Company Number: US-ACCORD-157806

PATIENT
  Age: 39 Year
  Sex: Female
  Weight: 117.03 kg

DRUGS (14)
  1. IRON [Concomitant]
     Active Substance: IRON
     Dates: start: 20110118
  2. PHENERGAN [Concomitant]
     Active Substance: PROMETHAZINE HYDROCHLORIDE
     Dates: start: 20071102, end: 20180403
  3. POTASSIUM [Concomitant]
     Active Substance: POTASSIUM
     Dates: start: 20170405, end: 20180321
  4. LIDOCAINE/PRILOCAINE [Concomitant]
     Active Substance: LIDOCAINE\PRILOCAINE
     Route: 061
     Dates: start: 20180321, end: 20180525
  5. DOCETAXEL ACCORD [Suspect]
     Active Substance: DOCETAXEL
     Indication: INVASIVE LOBULAR BREAST CARCINOMA
     Route: 042
     Dates: start: 20180322, end: 20180525
  6. TAMOXIFEN [Concomitant]
     Active Substance: TAMOXIFEN
     Dates: start: 20180501
  7. PRILOSEC [Concomitant]
     Active Substance: OMEPRAZOLE MAGNESIUM
     Dates: start: 20140915, end: 20180403
  8. HYDROCHLOROTHIAZIDE. [Concomitant]
     Active Substance: HYDROCHLOROTHIAZIDE
     Dates: start: 20150608, end: 20180911
  9. LYRICA [Concomitant]
     Active Substance: PREGABALIN
     Dates: start: 20190501
  10. NEOSAR [Suspect]
     Active Substance: CYCLOPHOSPHAMIDE
     Indication: INVASIVE LOBULAR BREAST CARCINOMA
     Route: 042
  11. NORVASC [Concomitant]
     Active Substance: AMLODIPINE BESYLATE
     Dates: start: 20170405, end: 20181104
  12. TRIAMTERENE. [Concomitant]
     Active Substance: TRIAMTERENE
     Dates: start: 20010101
  13. EMBELINE [Concomitant]
     Active Substance: CLOBETASOL PROPIONATE
     Dates: start: 20100501
  14. WELLBUTRIN [Concomitant]
     Active Substance: BUPROPION HYDROCHLORIDE
     Dates: start: 20120101

REACTIONS (1)
  - Alopecia [Not Recovered/Not Resolved]

NARRATIVE: CASE EVENT DATE: 20181125
